FAERS Safety Report 5924685-3 (Version None)
Quarter: 2008Q4

REPORT INFORMATION
  Report Type: 
  Country: None (occurrence: None)
  Receive Date: 20081015
  Receipt Date: 20081008
  Transmission Date: 20090506
  Serious: Yes (Hospitalization)
  Sender: FDA-Public Use
  Company Number: 1000000666

PATIENT
  Age: 65 Year
  Sex: Male
  Weight: 57 kg

DRUGS (7)
  1. MEMANTINE HCL [Suspect]
     Indication: DEMENTIA ALZHEIMER'S TYPE
     Dosage: 20 MG (20 MG, 1 IN 1 D), ORAL
     Route: 048
     Dates: start: 20080228, end: 20080326
  2. MEMANTINE HCL [Suspect]
     Indication: DEMENTIA ALZHEIMER'S TYPE
     Dosage: 20 MG (20 MG, 1 IN 1 D), ORAL
     Route: 048
     Dates: start: 20080327, end: 20080531
  3. MEMANTINE HCL [Suspect]
     Indication: DEMENTIA ALZHEIMER'S TYPE
     Dosage: 20 MG (20 MG, 1 IN 1 D), ORAL
     Route: 048
     Dates: start: 20080603, end: 20080804
  4. BROTIZOLAM (BROTIZOLAM) (BROTIZOLAM) [Concomitant]
  5. YOKU-KAN-SAN [Concomitant]
  6. AMLODIPINE BESYLATE [Concomitant]
  7. RISPERIDONE [Concomitant]

REACTIONS (10)
  - BLOOD CREATINE PHOSPHOKINASE INCREASED [None]
  - COMA [None]
  - DECUBITUS ULCER [None]
  - DISEASE PROGRESSION [None]
  - DYSKINESIA [None]
  - EPILEPSY [None]
  - EXCORIATION [None]
  - INFECTION [None]
  - SOMNOLENCE [None]
  - SUBDURAL HAEMATOMA [None]
